FAERS Safety Report 6124597-9 (Version None)
Quarter: 2009Q1

REPORT INFORMATION
  Report Type: 
  Country: None (occurrence: None)
  Receive Date: 20090319
  Receipt Date: 20090311
  Transmission Date: 20090719
  Serious: Yes (Other)
  Sender: FDA-Public Use
  Company Number: A0772534A

PATIENT
  Age: 65 Year
  Sex: Male

DRUGS (5)
  1. COREG CR [Suspect]
     Dosage: 80MG PER DAY
     Route: 048
     Dates: start: 20070501
  2. ALDACTONE [Concomitant]
  3. LASIX [Concomitant]
  4. ACE INHIBITOR [Concomitant]
  5. ASPIRIN [Concomitant]

REACTIONS (13)
  - CARDIAC FAILURE [None]
  - CHILLS [None]
  - COLD SWEAT [None]
  - DISTURBANCE IN ATTENTION [None]
  - DIZZINESS [None]
  - DYSPNOEA [None]
  - FEELING ABNORMAL [None]
  - HANGOVER [None]
  - HEADACHE [None]
  - IMPAIRED DRIVING ABILITY [None]
  - PALPITATIONS [None]
  - PERFORMANCE STATUS DECREASED [None]
  - UNEVALUABLE EVENT [None]
